FAERS Safety Report 7739384-5 (Version None)
Quarter: 2011Q3

REPORT INFORMATION
  Report Type: 
  Country: None (occurrence: None)
  Receive Date: 20110909
  Receipt Date: 20110726
  Transmission Date: 20111222
  Serious: Yes (Other)
  Sender: FDA-Public Use
  Company Number: DE-CELGENEUS-062-C5013-11040530

PATIENT
  Age: 80 Year
  Sex: Male
  Weight: 67 kg

DRUGS (5)
  1. LENALIDOMIDE [Suspect]
     Indication: NON-HODGKIN'S LYMPHOMA
     Dosage: 25 MILLIGRAM
     Route: 048
     Dates: start: 20071112
  2. TORSEMIDE [Concomitant]
     Dosage: 10 MILLIGRAM
     Route: 048
     Dates: start: 20110128
  3. ASPIRIN [Concomitant]
     Indication: THROMBOSIS PROPHYLAXIS
     Dosage: 100 MILLIGRAM
     Route: 048
     Dates: start: 20110310
  4. LENALIDOMIDE [Suspect]
     Route: 048
     Dates: start: 20110302, end: 20110329
  5. RAMIPRIL [Concomitant]
     Route: 048
     Dates: start: 20110128

REACTIONS (1)
  - SQUAMOUS CELL CARCINOMA OF SKIN [None]
